FAERS Safety Report 9066872 (Version 2)
Quarter: 2013Q2

REPORT INFORMATION
  Report Type: Report from Study
  Country: BE (occurrence: BE)
  Receive Date: 20130214
  Receipt Date: 20130411
  Transmission Date: 20140414
  Serious: Yes (Other)
  Sender: FDA-Public Use
  Company Number: BE-ABBOTT-13P-013-1047875-00

PATIENT
  Sex: Male

DRUGS (7)
  1. HUMIRA [Suspect]
     Indication: PSORIATIC ARTHROPATHY
     Dates: start: 20120124, end: 20120913
  2. LEDERTREXATE [Concomitant]
     Indication: ARTHRITIS
     Dates: end: 20120913
  3. FOLIC ACID [Concomitant]
     Indication: ARTHRITIS
  4. BRUFEN [Concomitant]
     Indication: ARTHRITIS
     Dates: end: 20120913
  5. NALTREXON [Concomitant]
     Indication: PRODUCT USED FOR UNKNOWN INDICATION
  6. SIPRALEXA [Concomitant]
     Indication: PRODUCT USED FOR UNKNOWN INDICATION
  7. NSAIDS [Concomitant]

REACTIONS (2)
  - Hepatitis [Recovered/Resolved]
  - Alcohol poisoning [Not Recovered/Not Resolved]
